FAERS Safety Report 8367339-9 (Version None)
Quarter: 2012Q2

REPORT INFORMATION
  Report Type: 
  Country: None (occurrence: None)
  Receive Date: 20120517
  Receipt Date: 20120514
  Transmission Date: 20120825
  Serious: Yes (Other)
  Sender: FDA-Public Use
  Company Number: US-PFIZER INC-2012117338

PATIENT
  Sex: Female
  Weight: 57.143 kg

DRUGS (1)
  1. CELEBREX [Suspect]
     Indication: ARTHRITIS
     Dosage: 200 MG, 1X/DAY
     Route: 048
     Dates: start: 20060101

REACTIONS (4)
  - CHONDROPATHY [None]
  - IRON DEFICIENCY [None]
  - ARTHRITIS [None]
  - REITER'S SYNDROME [None]
